FAERS Safety Report 6463536-8 (Version None)
Quarter: 2009Q4

REPORT INFORMATION
  Report Type: 
  Country: None (occurrence: None)
  Receive Date: 20091201
  Receipt Date: 20091124
  Transmission Date: 20100525
  Serious: Yes (Death)
  Sender: FDA-Public Use
  Company Number: GR-RB-025669-09

PATIENT
  Age: 38 Year
  Sex: Male

DRUGS (3)
  1. SUBUTEX [Suspect]
     Dosage: FORM UNKNOWN
     Route: 065
     Dates: start: 20090723, end: 20091105
  2. SUBOXONE [Suspect]
     Dosage: FORM UNKNOWN
     Route: 065
     Dates: start: 20090101, end: 20091105
  3. ANTIDEPRESSANT [Suspect]
     Indication: DRUG USE FOR UNKNOWN INDICATION
     Dosage: DOSING DETAILS UNKNOWN
     Route: 065

REACTIONS (1)
  - PULMONARY OEDEMA [None]
